FAERS Safety Report 15940191 (Version 1)
Quarter: 2019Q1

REPORT INFORMATION
  Report Type: Spontaneous
  Country: CH (occurrence: CH)
  Receive Date: 20190208
  Receipt Date: 20190208
  Transmission Date: 20190417
  Serious: Yes (Hospitalization, Other)
  Sender: FDA-Public Use
  Company Number: CH-JNJFOC-20190201889

PATIENT
  Age: 69 Year
  Sex: Female

DRUGS (11)
  1. SPIRICORT [Concomitant]
     Active Substance: PREDNISOLONE
     Route: 048
  2. PANTOPRAZOL SANDOZ [Concomitant]
     Active Substance: PANTOPRAZOLE SODIUM
     Route: 048
  3. ROSUVASTATIN. [Concomitant]
     Active Substance: ROSUVASTATIN
     Route: 048
  4. VENTOLINE [Concomitant]
     Active Substance: ALBUTEROL
     Dosage: 0.5 MG/2 MILLILITER
     Route: 065
  5. BACTRIM [Concomitant]
     Active Substance: SULFAMETHOXAZOLE\TRIMETHOPRIM
     Dosage: 800/160 MG ONCE DAILY ON MON/WED/FRI
     Route: 048
  6. PULMICORT TURBUHALER [Concomitant]
     Active Substance: BUDESONIDE
     Dosage: 0.5MG/2 MILLILITER
     Route: 065
  7. REMICADE [Suspect]
     Active Substance: INFLIXIMAB
     Indication: POLYCHONDRITIS
     Route: 042
     Dates: start: 2018, end: 2018
  8. VI-DE 3 [Concomitant]
     Active Substance: CHOLECALCIFEROL
     Dosage: 4500U/1 MILLILITER
     Route: 048
  9. ARAVA [Concomitant]
     Active Substance: LEFLUNOMIDE
     Route: 048
  10. REMICADE [Suspect]
     Active Substance: INFLIXIMAB
     Indication: POLYCHONDRITIS
     Route: 042
     Dates: start: 2018
  11. CALCIMAGON D3 [Concomitant]
     Active Substance: CALCIUM\CHOLECALCIFEROL
     Dosage: 1,000 MG/800 U
     Route: 048

REACTIONS (10)
  - Off label use [Unknown]
  - Tremor [Recovered/Resolved]
  - Speech disorder [Recovered/Resolved]
  - Product use in unapproved indication [Unknown]
  - Infection [Unknown]
  - Infusion related reaction [Recovered/Resolved]
  - Fatigue [Recovered/Resolved]
  - Paraesthesia [Recovered/Resolved]
  - Headache [Recovered/Resolved]
  - Hypersomnia [Recovered/Resolved]

NARRATIVE: CASE EVENT DATE: 2018
